FAERS Safety Report 8455612-5 (Version None)
Quarter: 2012Q2

REPORT INFORMATION
  Report Type: 
  Country: None (occurrence: None)
  Receive Date: 20120613
  Receipt Date: 20120604
  Transmission Date: 20120825
  Serious: Yes (Hospitalization)
  Sender: FDA-Public Use
  Company Number: 2012SP030460

PATIENT
  Age: 62 Year
  Sex: Male
  Weight: 90 kg

DRUGS (6)
  1. VICTRELIS [Suspect]
     Indication: HEPATITIS C
     Dosage: 2.4 GM;QD
     Dates: start: 20110627, end: 20110718
  2. PEGASYS [Suspect]
     Indication: HEPATITIS C
     Dosage: 150 MCG;QW
     Dates: start: 20110531, end: 20110718
  3. CITALOPRAM HYDROBROMIDE [Concomitant]
  4. PRAZEPAM [Concomitant]
  5. RIBAVIRIN [Suspect]
     Indication: HEPATITIS C
     Dosage: 1600 MG;QD
     Dates: start: 20110531, end: 20110718
  6. ZOLPIDEM TARTRATE [Concomitant]

REACTIONS (2)
  - DEPRESSION [None]
  - CONDITION AGGRAVATED [None]
